FAERS Safety Report 8359571-5 (Version None)
Quarter: 2012Q2

REPORT INFORMATION
  Report Type: 
  Country: None (occurrence: None)
  Receive Date: 20120515
  Receipt Date: 20120507
  Transmission Date: 20120825
  Serious: Yes (Hospitalization, Other)
  Sender: FDA-Public Use
  Company Number: US-ELI_LILLY_AND_COMPANY-US201107001885

PATIENT
  Age: 56 Year
  Sex: Male

DRUGS (12)
  1. METPROLOL [Concomitant]
  2. NOVOLIN 70/30 [Concomitant]
  3. HUMULIN N [Suspect]
     Indication: DIABETES MELLITUS
     Dosage: 33 U, EACH MORNING
     Dates: start: 20000101
  4. PAXIL [Concomitant]
  5. RISPERDAL [Concomitant]
  6. HALDOL [Concomitant]
  7. LISINOPRIL                              /USA/ [Concomitant]
  8. HUMALOG [Suspect]
     Indication: BLOOD GLUCOSE INCREASED
     Dosage: 6 U, EACH EVENING
     Dates: start: 20090101
  9. HUMULIN N [Suspect]
     Dosage: 34 U, EACH EVENING
     Dates: start: 20000101
  10. ZYPREXA [Suspect]
     Indication: PSYCHOPATHIC PERSONALITY
     Dosage: UNK
     Dates: start: 20060101
  11. GLUCOPHAGE                              /USA/ [Concomitant]
     Dosage: 1000 MG, BID
  12. ANTIHYPERTENSIVES [Concomitant]
     Dosage: UNK

REACTIONS (16)
  - PANCREATIC DISORDER [None]
  - HYPOGLYCAEMIC UNCONSCIOUSNESS [None]
  - HOSPITALISATION [None]
  - BLOOD GLUCOSE INCREASED [None]
  - BLOOD GLUCOSE DECREASED [None]
  - FEELING ABNORMAL [None]
  - DELUSION [None]
  - GLYCOSYLATED HAEMOGLOBIN INCREASED [None]
  - NEUROPATHY PERIPHERAL [None]
  - BLADDER CANCER [None]
  - NEUROMA [None]
  - DIABETIC COMA [None]
  - INCORRECT DOSE ADMINISTERED [None]
  - UNDERDOSE [None]
  - TREMOR [None]
  - TENDONITIS [None]
